FAERS Safety Report 6712265-1 (Version None)
Quarter: 2010Q2

REPORT INFORMATION
  Report Type: 
  Country: None (occurrence: None)
  Receive Date: 20100505
  Receipt Date: 20100423
  Transmission Date: 20101027
  Serious: Yes (Other)
  Sender: FDA-Public Use
  Company Number: US-ELI_LILLY_AND_COMPANY-US201004007871

PATIENT
  Sex: Male

DRUGS (4)
  1. ZYPREXA [Suspect]
     Indication: PSYCHOTIC DISORDER
     Dosage: 2.5 MG, UNK
  2. CRESTOR [Concomitant]
  3. METFORMIN HCL [Concomitant]
  4. TRILEPTAL [Concomitant]

REACTIONS (1)
  - HYPONATRAEMIA [None]
